FAERS Safety Report 6702453-2 (Version None)
Quarter: 2010Q2

REPORT INFORMATION
  Report Type: 
  Country: None (occurrence: None)
  Receive Date: 20100429
  Receipt Date: 20100421
  Transmission Date: 20101027
  Serious: Yes (Hospitalization)
  Sender: FDA-Public Use
  Company Number: B0639677A

PATIENT
  Sex: Female

DRUGS (6)
  1. ZOVIRAX [Suspect]
     Indication: INFECTION PROPHYLAXIS
     Route: 042
     Dates: start: 20091219, end: 20091225
  2. ZOVIRAX [Suspect]
     Dosage: 200MG PER DAY
     Route: 048
     Dates: start: 20100129
  3. VICCLOX [Concomitant]
     Indication: INFECTION PROPHYLAXIS
     Dosage: 750MG PER DAY
     Route: 042
     Dates: start: 20091226, end: 20100125
  4. SANDIMMUNE [Concomitant]
     Indication: PROPHYLAXIS
     Dosage: 120MG PER DAY
     Route: 042
     Dates: start: 20091221, end: 20100123
  5. MEROPEN [Concomitant]
     Indication: INFECTION
     Dosage: 2G PER DAY
     Route: 042
     Dates: start: 20091221, end: 20100223
  6. AMBISOME [Concomitant]
     Indication: INFECTION
     Dosage: 100MG PER DAY
     Route: 042
     Dates: start: 20091128, end: 20100305

REACTIONS (5)
  - ABNORMAL BEHAVIOUR [None]
  - EYE DISORDER [None]
  - IMPATIENCE [None]
  - LOGORRHOEA [None]
  - PERSONALITY CHANGE [None]
